FAERS Safety Report 13239895 (Version 2)
Quarter: 2020Q2

REPORT INFORMATION
  Report Type: Spontaneous
  Country: US (occurrence: US)
  Receive Date: 20170216
  Receipt Date: 20200427
  Transmission Date: 20200713
  Serious: No
  Sender: FDA-Public Use
  Company Number: US-PFIZER INC-2017063697

PATIENT
  Age: 67 Year
  Sex: Female
  Weight: 86 kg

DRUGS (7)
  1. LORAZEPAM. [Concomitant]
     Active Substance: LORAZEPAM
     Dosage: 0.5 MG, AS NEEDED [TAKE 1 TABLET BY ORAL ROUTE 2 TIMES EVERY DAY]
     Route: 048
     Dates: start: 20160810
  2. AROMASIN [Suspect]
     Active Substance: EXEMESTANE
     Indication: INVASIVE DUCTAL BREAST CARCINOMA
     Dosage: 25 MG
     Dates: start: 201701
  3. PROBIOTIC [Concomitant]
     Active Substance: PROBIOTICS NOS
     Dosage: UNK
     Dates: start: 20160810
  4. MAGNESIUM [Concomitant]
     Active Substance: MAGNESIUM
     Dosage: 2 DF, DAILY
     Route: 048
     Dates: start: 20160810
  5. MELOXICAM. [Concomitant]
     Active Substance: MELOXICAM
     Dosage: UNK
  6. VITAMIN B COMPLEX [Concomitant]
     Active Substance: CYANOCOBALAMIN\DEXPANTHENOL\NIACINAMIDE\PYRIDOXINE HYDROCHLORIDE\RIBOFLAVIN 5^-PHOSPHATE SODIUM\THIAMINE HYDROCHLORIDE\VITAMIN B COMPLEX
     Dosage: UNK
     Dates: start: 20150504
  7. ARMOUR THYROID [Concomitant]
     Active Substance: THYROID, PORCINE
     Dosage: 60 MG, DAILY
     Dates: start: 20150504

REACTIONS (1)
  - Pain in extremity [Recovering/Resolving]

NARRATIVE: CASE EVENT DATE: 2017
